FAERS Safety Report 16923891 (Version 2)
Quarter: 2019Q4

REPORT INFORMATION
  Report Type: Spontaneous
  Country: NL (occurrence: NL)
  Receive Date: 20191016
  Receipt Date: 20191225
  Transmission Date: 20200122
  Serious: Yes (Other)
  Sender: FDA-Public Use
  Company Number: NL-ACCORD-157418

PATIENT
  Age: 57 Year
  Sex: Female
  Weight: 112 kg

DRUGS (7)
  1. FUROSEMIDE. [Suspect]
     Active Substance: FUROSEMIDE
     Indication: PRODUCT USED FOR UNKNOWN INDICATION
  2. LANOXIN [Interacting]
     Active Substance: DIGOXIN
     Indication: ARRHYTHMIA
     Dosage: ONCE A DAY
     Dates: start: 20190527, end: 20190810
  3. SPIRONOLACTONE. [Interacting]
     Active Substance: SPIRONOLACTONE
     Indication: PRODUCT USED FOR UNKNOWN INDICATION
  4. METOPROLOL. [Concomitant]
     Active Substance: METOPROLOL
  5. PANTOPRAZOLE [Concomitant]
     Active Substance: PANTOPRAZOLE
  6. ELIQUIS [Concomitant]
     Active Substance: APIXABAN
  7. PERINDOPRIL [Concomitant]
     Active Substance: PERINDOPRIL

REACTIONS (5)
  - Arrhythmia [Recovered/Resolved with Sequelae]
  - Drug interaction [Unknown]
  - Liver disorder [Recovered/Resolved with Sequelae]
  - Neurologic neglect syndrome [Recovered/Resolved]
  - Condition aggravated [Recovered/Resolved with Sequelae]

NARRATIVE: CASE EVENT DATE: 20190527
